FAERS Safety Report 15676013 (Version 2)
Quarter: 2018Q4

REPORT INFORMATION
  Report Type: Spontaneous
  Country: US (occurrence: US)
  Receive Date: 20181130
  Receipt Date: 20181219
  Transmission Date: 20190205
  Serious: No
  Sender: FDA-Public Use
  Company Number: US-PFIZER INC-2018482541

PATIENT
  Age: 54 Year

DRUGS (3)
  1. KETOROLAC TROMETHAMINE. [Suspect]
     Active Substance: KETOROLAC TROMETHAMINE
     Dosage: UNK
  2. CODEINE [Suspect]
     Active Substance: CODEINE
     Dosage: UNK
  3. BUMETANIDE. [Suspect]
     Active Substance: BUMETANIDE
     Dosage: UNK

REACTIONS (1)
  - Drug hypersensitivity [Unknown]
